FAERS Safety Report 13385990 (Version 1)
Quarter: 2017Q1

REPORT INFORMATION
  Report Type: Spontaneous
  Country: IT (occurrence: IT)
  Receive Date: 20170330
  Receipt Date: 20170330
  Transmission Date: 20170429
  Serious: Yes (Hospitalization)
  Sender: FDA-Public Use
  Company Number: PHHY2017IT044888

PATIENT
  Age: 53 Year
  Sex: Female

DRUGS (1)
  1. QUETIAPINE. [Suspect]
     Active Substance: QUETIAPINE
     Indication: DRUG ABUSE
     Dosage: 1800 MG, ONCE/SINGLE
     Route: 048
     Dates: start: 20170301, end: 20170301

REACTIONS (2)
  - Drug abuse [Unknown]
  - Depressed level of consciousness [Recovered/Resolved with Sequelae]

NARRATIVE: CASE EVENT DATE: 20170301
